FAERS Safety Report 11274528 (Version 1)
Quarter: 2015Q3

REPORT INFORMATION
  Report Type: Spontaneous
  Country: CH (occurrence: ES)
  Receive Date: 20150715
  Receipt Date: 20150715
  Transmission Date: 20151125
  Serious: Yes (Hospitalization)
  Sender: FDA-Public Use
  Company Number: CH-LPDUSPRD-20150545

PATIENT
  Age: 37 Year
  Sex: Male

DRUGS (17)
  1. COROPRES [Concomitant]
     Active Substance: CARVEDILOL
     Dosage: 25 MG, 28 TABLETS
     Route: 048
     Dates: start: 20080219
  2. HIDROFEROL [Concomitant]
     Active Substance: CALCIFEDIOL
     Dosage: 0.1 MILLIGRAM/MILLILITERS
     Route: 048
  3. MIMPARA [Concomitant]
     Active Substance: CINACALCET HYDROCHLORIDE
     Dosage: 30 MG, 28 TABLETS
     Route: 048
     Dates: start: 20140429
  4. VENOFER [Suspect]
     Active Substance: IRON SUCROSE
     Dosage: 200 MG, 1 IN 3 M
     Route: 042
     Dates: start: 20120612, end: 20140912
  5. EZETROL [Concomitant]
     Active Substance: EZETIMIBE
     Dosage: 10 MG, 28 TABLES
     Route: 048
     Dates: start: 20090505
  6. KARVEA [Concomitant]
     Active Substance: IRBESARTAN
     Dosage: 150MG,28 TABLETS
     Route: 048
     Dates: start: 20140710
  7. ARANESP [Suspect]
     Active Substance: DARBEPOETIN ALFA
     Dosage: 40 MCG, 1 IN 1 WK
     Route: 058
     Dates: start: 20140710, end: 20140914
  8. SEQURIL [Concomitant]
     Dosage: 40 MG, 30 TABLETS
     Route: 048
     Dates: start: 20140311
  9. DOXAZOSIN [Concomitant]
     Active Substance: DOXAZOSIN\DOXAZOSIN MESYLATE
     Route: 048
  10. OMEPRAZOLE. [Concomitant]
     Active Substance: OMEPRAZOLE
     Dosage: 20 MG, 1 IN 1D
     Route: 048
  11. ZARATOR [Concomitant]
     Active Substance: ATORVASTATIN CALCIUM
     Dosage: 40 MG, 200 TABLET
     Route: 048
     Dates: start: 20131010
  12. ADVAGRAF [Concomitant]
     Active Substance: TACROLIMUS
     Dosage: 0.5 MG, 30 CAPSULES
     Route: 048
     Dates: start: 20140710
  13. CALCIFEDIOL [Concomitant]
     Active Substance: CALCIFEDIOL
     Dosage: 3 MG, 1 IN 1 D
     Route: 048
  14. RENITEC [Concomitant]
     Active Substance: ENALAPRIL MALEATE
     Dosage: 20 MG, 28 TABLETS
     Route: 048
     Dates: start: 20090505
  15. CAOSINA [Concomitant]
     Active Substance: CALCIUM CARBONATE
     Dosage: 24 ENVELOPES
     Route: 048
     Dates: start: 20140710
  16. RESINSODIC [Concomitant]
     Dosage: 1 FLASK OF 400 GRAM
     Route: 048
     Dates: start: 20080219
  17. CELLCEPT [Concomitant]
     Active Substance: MYCOPHENOLATE MOFETIL\MYCOPHENOLATE MOFETIL HYDROCHLORIDE
     Dosage: 250 MG, 100 CAPSULES
     Route: 048
     Dates: start: 20090505

REACTIONS (1)
  - Priapism [Recovered/Resolved]

NARRATIVE: CASE EVENT DATE: 201408
